FAERS Safety Report 6373636-9 (Version None)
Quarter: 2009Q3

REPORT INFORMATION
  Report Type: 
  Country: None (occurrence: None)
  Receive Date: 20090924
  Receipt Date: 20090911
  Transmission Date: 20100115
  Serious: Yes (Other)
  Sender: FDA-Public Use
  Company Number: GB-PFIZER INC-2009267244

PATIENT
  Age: 56 Year

DRUGS (1)
  1. SULFASALAZINE [Suspect]
     Indication: PSORIATIC ARTHROPATHY
     Dosage: 1 G, 2X/DAY
     Route: 048
     Dates: start: 20090626, end: 20090810

REACTIONS (5)
  - ERYTHEMA [None]
  - MALAISE [None]
  - PALPITATIONS [None]
  - SYNCOPE [None]
  - TACHYARRHYTHMIA [None]
